FAERS Safety Report 21133701 (Version 1)
Quarter: 2022Q3

REPORT INFORMATION
  Report Type: Spontaneous
  Country: US (occurrence: US)
  Receive Date: 20220726
  Receipt Date: 20220726
  Transmission Date: 20221026
  Serious: No
  Sender: FDA-Public Use
  Company Number: US-NOVARTISTESTPH-NVSC2022US167560

PATIENT
  Age: 34 Year
  Sex: Female

DRUGS (1)
  1. INFUVITE ADULT [Suspect]
     Active Substance: .ALPHA.-TOCOPHEROL ACETATE\ASCORBIC ACID\BIOTIN\CHOLECALCIFEROL\CYANOCOBALAMIN\DEXPANTHENOL\FOLIC AC
     Indication: Vomiting
     Dosage: UNK
     Route: 042
     Dates: start: 20220629, end: 20220629

REACTIONS (3)
  - Cough [Recovered/Resolved]
  - Oropharyngeal discomfort [Recovered/Resolved]
  - Maternal exposure during pregnancy [Unknown]

NARRATIVE: CASE EVENT DATE: 20220629
